FAERS Safety Report 11114196 (Version 1)
Quarter: 2015Q2

REPORT INFORMATION
  Report Type: Spontaneous
  Country: US (occurrence: US)
  Receive Date: 20150514
  Receipt Date: 20150514
  Transmission Date: 20150821
  Serious: No
  Sender: FDA-Public Use
  Company Number: US-BIOMARINAP-US-2015-106361

PATIENT
  Age: 4 Year
  Sex: Female

DRUGS (1)
  1. KUVAN [Suspect]
     Active Substance: SAPROPTERIN DIHYDROCHLORIDE
     Indication: PRODUCT USED FOR UNKNOWN INDICATION
     Dosage: 200 MG, QD
     Route: 048
     Dates: start: 20150508

REACTIONS (4)
  - Rhinorrhoea [Unknown]
  - Cough [Unknown]
  - Productive cough [Unknown]
  - Vomiting [Unknown]

NARRATIVE: CASE EVENT DATE: 20150509
